FAERS Safety Report 11028205 (Version 1)
Quarter: 2015Q2

REPORT INFORMATION
  Report Type: Spontaneous
  Country: US (occurrence: US)
  Receive Date: 20150414
  Receipt Date: 20150414
  Transmission Date: 20150821
  Serious: No
  Sender: FDA-Public Use
  Company Number: US-GLAXOSMITHKLINE-US2015GSK050206

PATIENT
  Age: 76 Year
  Sex: Male

DRUGS (1)
  1. PROMACTA [Suspect]
     Active Substance: ELTROMBOPAG OLAMINE
     Indication: PRODUCT USED FOR UNKNOWN INDICATION
     Dosage: 50 MG, QD
     Route: 048
     Dates: start: 201412

REACTIONS (9)
  - Bronchitis chronic [Unknown]
  - Decreased appetite [Unknown]
  - Therapeutic procedure [Unknown]
  - Dyspnoea [Unknown]
  - Dry skin [Unknown]
  - Epistaxis [Unknown]
  - Dysuria [Unknown]
  - Pruritus [Unknown]
  - Pollakiuria [Unknown]

NARRATIVE: CASE EVENT DATE: 201501
